FAERS Safety Report 5726766-6 (Version None)
Quarter: 2008Q2

REPORT INFORMATION
  Report Type: 
  Country: None (occurrence: None)
  Receive Date: 20080502
  Receipt Date: 20080423
  Transmission Date: 20081010
  Serious: Yes (Hospitalization, Other)
  Sender: FDA-Public Use
  Company Number: BR-ABBOTT-08P-020-0445003-00

PATIENT
  Sex: Female
  Weight: 68.5 kg

DRUGS (13)
  1. HUMIRA [Suspect]
     Indication: RHEUMATOID ARTHRITIS
     Route: 058
     Dates: start: 20071201
  2. HUMIRA [Suspect]
     Route: 058
  3. DEFLAZACORT [Concomitant]
     Indication: RHEUMATOID ARTHRITIS
     Route: 048
  4. OSCAL [Concomitant]
     Indication: RHEUMATOID ARTHRITIS
     Route: 048
  5. ALENDRONATE SODIUM [Concomitant]
     Indication: RHEUMATOID ARTHRITIS
     Route: 048
  6. NAPROXEN [Concomitant]
     Indication: PAIN
     Route: 048
  7. HYZAAR [Concomitant]
     Indication: HYPERTENSION
     Dosage: 100MG + 25 MG
     Route: 048
  8. AMLODIPINE BESILATE [Concomitant]
     Indication: HYPERTENSION
     Route: 048
  9. FLUOXETINE HYDROCHLORIDE [Concomitant]
     Indication: MENTAL DISORDER
     Route: 048
  10. CLONAZEPAM [Concomitant]
     Indication: MENTAL DISORDER
     Dosage: 6 TO 10 DROPS A DAY
     Route: 048
  11. RISPERIDONE [Concomitant]
     Indication: MENTAL DISORDER
     Route: 048
  12. OMEPRAZOLE [Concomitant]
     Indication: PROPHYLAXIS AGAINST GASTROINTESTINAL ULCER
     Route: 048
  13. SERUM + UNKNOWN MEDICATIONS [Concomitant]

REACTIONS (9)
  - CEREBROVASCULAR ACCIDENT [None]
  - FALL [None]
  - FEMUR FRACTURE [None]
  - HAEMORRHAGE [None]
  - ILL-DEFINED DISORDER [None]
  - MOBILITY DECREASED [None]
  - OEDEMA PERIPHERAL [None]
  - SURGERY [None]
  - THROMBOSIS [None]
